FAERS Safety Report 8986478 (Version 1)
Quarter: 2012Q4

REPORT INFORMATION
  Report Type: Report from Study
  Country: AT (occurrence: AT)
  Receive Date: 20121227
  Receipt Date: 20121227
  Transmission Date: 20130627
  Serious: Yes (Other)
  Sender: FDA-Public Use
  Company Number: AT-BAYER-2012-133207

PATIENT
  Sex: Female

DRUGS (1)
  1. LEVONORGESTREL [Suspect]
     Dosage: 20 mcg/24hr, CONT
     Route: 015

REACTIONS (1)
  - Cervix carcinoma [None]
